FAERS Safety Report 8602396-3 (Version None)
Quarter: 2012Q3

REPORT INFORMATION
  Report Type: 
  Country: None (occurrence: None)
  Receive Date: 20120817
  Receipt Date: 20120809
  Transmission Date: 20120928
  Serious: Yes (Other)
  Sender: FDA-Public Use
  Company Number: CA-ROCHE-1101066

PATIENT
  Sex: Female
  Weight: 47 kg

DRUGS (12)
  1. DOCUSATE [Concomitant]
  2. PANTOPRAZOLE SODIUM [Concomitant]
  3. AVASTIN [Suspect]
     Indication: GLIOBLASTOMA
     Route: 042
     Dates: start: 20120611
  4. DECADRON PHOSPHATE [Concomitant]
  5. KEPPRA [Concomitant]
  6. ACETAMINOPHEN [Concomitant]
     Indication: PREMEDICATION
     Route: 048
     Dates: start: 20120813, end: 20120813
  7. METHYLPREDNISOLONE [Concomitant]
     Indication: PREMEDICATION
     Route: 042
     Dates: start: 20120813, end: 20120813
  8. AVASTIN [Suspect]
     Route: 042
     Dates: start: 20120730
  9. ZANTAC [Concomitant]
  10. DIPHENHYDRAMINE HCL [Concomitant]
     Indication: PREMEDICATION
     Route: 048
     Dates: start: 20120813, end: 20120813
  11. AVASTIN [Suspect]
     Route: 042
     Dates: start: 20120813
  12. TEGRETOL [Concomitant]

REACTIONS (4)
  - ASTHENIA [None]
  - POVERTY OF SPEECH [None]
  - NEOPLASM [None]
  - WEIGHT DECREASED [None]
